FAERS Safety Report 5851075-4 (Version None)
Quarter: 2008Q3

REPORT INFORMATION
  Report Type: 
  Country: None (occurrence: None)
  Receive Date: 20080820
  Receipt Date: 20080630
  Transmission Date: 20090109
  Serious: No
  Sender: FDA-Public Use
  Company Number: US-BAYER-200827519NA

PATIENT
  Age: 15 Year
  Sex: Female
  Weight: 52 kg

DRUGS (2)
  1. ULTRAVIST 370 [Suspect]
     Indication: COMPUTERISED TOMOGRAM ABDOMEN
     Dosage: TOTAL DAILY DOSE: 55  ML  UNIT DOSE: 100 ML
     Route: 042
     Dates: start: 20080630, end: 20080630
  2. GASTROGRAFIN [Concomitant]
     Indication: COMPUTERISED TOMOGRAM ABDOMEN
     Route: 048
     Dates: start: 20080630, end: 20080630

REACTIONS (4)
  - COUGH [None]
  - GLOSSODYNIA [None]
  - SNEEZING [None]
  - THROAT IRRITATION [None]
